FAERS Safety Report 24213515 (Version 1)
Quarter: 2024Q3

REPORT INFORMATION
  Report Type: Spontaneous
  Country: US (occurrence: US)
  Receive Date: 20240815
  Receipt Date: 20240815
  Transmission Date: 20241017
  Serious: Yes (Hospitalization, Disabling, Other)
  Sender: AMGEN
  Company Number: US-AMGEN-USASP2024156659

PATIENT
  Age: 75 Year
  Sex: Female

DRUGS (1)
  1. PROLIA [Suspect]
     Active Substance: DENOSUMAB
     Indication: Osteoporosis postmenopausal
     Dosage: 60 MILLIGRAM, Q6MO
     Route: 065
     Dates: start: 2022

REACTIONS (5)
  - Pelvic fracture [Unknown]
  - Fall [Unknown]
  - Dizziness [Unknown]
  - Headache [Unknown]
  - Therapy change [Unknown]

NARRATIVE: CASE EVENT DATE: 20240722
